FAERS Safety Report 8244354-7 (Version None)
Quarter: 2012Q1

REPORT INFORMATION
  Report Type: 
  Country: None (occurrence: None)
  Receive Date: 20120329
  Receipt Date: 20120323
  Transmission Date: 20120608
  Serious: Yes (Death, Hospitalization, Other)
  Sender: FDA-Public Use
  Company Number: JP-PFIZER INC-2012072114

PATIENT
  Age: 79 Year
  Sex: Male
  Weight: 50 kg

DRUGS (11)
  1. LIPITOR [Suspect]
     Indication: DYSLIPIDAEMIA
     Dosage: 10 MG, 1X/DAY
     Route: 048
     Dates: end: 20110131
  2. URSO 250 [Concomitant]
     Dosage: UNK
     Dates: end: 20110131
  3. PROLMON [Concomitant]
     Dosage: UNK
     Dates: end: 20110131
  4. SELBEX [Concomitant]
     Dosage: UNK
     Dates: end: 20110131
  5. GASCON [Concomitant]
     Dosage: UNK
     Dates: end: 20110131
  6. DAIKENTYUTO [Concomitant]
     Dosage: UNK
     Dates: end: 20110131
  7. SHAKUYAKUKANZOUTOU [Concomitant]
     Dosage: UNK
     Dates: end: 20110131
  8. MAGNESIUM OXIDE [Concomitant]
     Dosage: UNK
     Dates: end: 20110131
  9. PHENYTOIN SODIUM CAP [Suspect]
     Indication: EPILEPSY
     Dosage: 1 G, 2X/DAY
     Dates: end: 20110131
  10. ENTERONON R [Concomitant]
     Dosage: UNK
     Dates: end: 20110131
  11. FAMOTIDINE [Concomitant]
     Dosage: 2 %
     Dates: end: 20110131

REACTIONS (2)
  - HEPATITIS FULMINANT [None]
  - MENINGIOMA [None]
